FAERS Safety Report 4801690-1 (Version None)
Quarter: 2005Q4

REPORT INFORMATION
  Report Type: 
  Country: None (occurrence: None)
  Receive Date: 20051018
  Receipt Date: 20031212
  Transmission Date: 20060501
  Serious: Yes (Life-Threatening)
  Sender: FDA-Public Use
  Company Number: JP-GLAXOSMITHKLINE-B0317728A

PATIENT
  Age: 70 Year
  Sex: Male

DRUGS (15)
  1. VALACYCLOVIR HCL [Suspect]
     Indication: FACIAL NERVE DISORDER
     Dosage: 1000MG THREE TIMES PER DAY
     Route: 048
     Dates: start: 20031208, end: 20031209
  2. PREDONINE [Suspect]
     Route: 042
  3. VERAPAMIL [Concomitant]
     Route: 065
  4. BUSCOPAN [Concomitant]
     Route: 065
  5. TOUGHMAC E [Concomitant]
     Route: 048
  6. CYANOCOBALAMIN [Concomitant]
     Route: 065
  7. CIRCULETIN [Concomitant]
     Route: 065
  8. SOSEGON [Concomitant]
     Route: 065
  9. TRINOSIN S [Concomitant]
     Route: 042
  10. RHYTHMY [Concomitant]
     Route: 048
  11. ADETPHOS [Concomitant]
     Route: 048
  12. GASTER D [Concomitant]
     Route: 048
  13. GASCON [Concomitant]
     Route: 048
  14. DIGITOXIN TAB [Concomitant]
     Route: 048
  15. FRANDOL S [Concomitant]
     Route: 062

REACTIONS (3)
  - DEPRESSED LEVEL OF CONSCIOUSNESS [None]
  - ENCEPHALOPATHY [None]
  - RESTLESSNESS [None]
